FAERS Safety Report 17614085 (Version 5)
Quarter: 2020Q3

REPORT INFORMATION
  Report Type: Spontaneous
  Country: US (occurrence: US)
  Receive Date: 20200402
  Receipt Date: 20200902
  Transmission Date: 20201102
  Serious: No
  Sender: FDA-Public Use
  Company Number: US-GLAXOSMITHKLINE-US2020AMR055630

PATIENT
  Sex: Female

DRUGS (4)
  1. ZEJULA [Suspect]
     Active Substance: NIRAPARIB
     Indication: MALIGNANT PERITONEAL NEOPLASM
     Dosage: 300 MG, QD
     Dates: start: 20200203
  2. ZEJULA [Suspect]
     Active Substance: NIRAPARIB
     Dosage: 200 MG, QD
     Dates: start: 20200521
  3. ZEJULA [Suspect]
     Active Substance: NIRAPARIB
     Dosage: 200 MG, QD
  4. ZEJULA [Suspect]
     Active Substance: NIRAPARIB
     Dosage: 200 MG, QD

REACTIONS (12)
  - Decreased appetite [Not Recovered/Not Resolved]
  - Cough [Unknown]
  - Unevaluable event [Unknown]
  - Drug intolerance [Unknown]
  - Dysphonia [Unknown]
  - Haemoglobin decreased [Unknown]
  - Nail discolouration [Unknown]
  - Feeling abnormal [Unknown]
  - Drug monitoring procedure not performed [Unknown]
  - Asthenia [Unknown]
  - Dizziness [Unknown]
  - Dry mouth [Unknown]
